FAERS Safety Report 11935693 (Version 1)
Quarter: 2016Q1

REPORT INFORMATION
  Report Type: Report from Study
  Country: AT (occurrence: AT)
  Receive Date: 20160121
  Receipt Date: 20160121
  Transmission Date: 20160526
  Serious: Yes (Hospitalization)
  Sender: FDA-Public Use
  Company Number: PHHY2015AT171124

PATIENT
  Sex: Female
  Weight: 80 kg

DRUGS (12)
  1. NOVALGIN [Concomitant]
     Active Substance: METAMIZOLE SODIUM
     Indication: PAIN
     Dosage: 6 DF, QD (4 TO 6)
     Route: 065
  2. EXEMESTANE. [Concomitant]
     Active Substance: EXEMESTANE
     Indication: PRODUCT USED FOR UNKNOWN INDICATION
     Dosage: UNK
     Route: 065
     Dates: start: 20151222
  3. GEMZAR [Concomitant]
     Active Substance: GEMCITABINE HYDROCHLORIDE
     Indication: PRODUCT USED FOR UNKNOWN INDICATION
     Route: 065
     Dates: start: 20160108
  4. VITAMIN D [Concomitant]
     Active Substance: CHOLECALCIFEROL
     Indication: PRODUCT USED FOR UNKNOWN INDICATION
     Route: 065
  5. AFINITOR [Suspect]
     Active Substance: EVEROLIMUS
     Indication: BREAST CANCER METASTATIC
     Dosage: 5 MG, QD
     Route: 065
     Dates: start: 20151222, end: 20151229
  6. ADVACAL//CALCIUM [Concomitant]
     Indication: PRODUCT USED FOR UNKNOWN INDICATION
     Dosage: UNK
     Route: 065
  7. CAPECITABINE. [Concomitant]
     Active Substance: CAPECITABINE
     Dosage: 2 DF, BID (DAY 1 TO DAY 14) (2-0-2)
     Route: 065
     Dates: start: 20151201
  8. CARBOPLATIN. [Concomitant]
     Active Substance: CARBOPLATIN
     Indication: PRODUCT USED FOR UNKNOWN INDICATION
     Route: 065
     Dates: start: 20151229
  9. CAPECITABINE. [Concomitant]
     Active Substance: CAPECITABINE
     Indication: PRODUCT USED FOR UNKNOWN INDICATION
     Dosage: 2 DF, BID (DAY 1 TO DAY 14) (2-0-2)
     Route: 065
     Dates: start: 20151110
  10. LOVENOX [Concomitant]
     Active Substance: ENOXAPARIN SODIUM
     Indication: PRODUCT USED FOR UNKNOWN INDICATION
     Dosage: 1 DF, QD
     Route: 065
  11. XGEVA [Concomitant]
     Active Substance: DENOSUMAB
     Indication: PRODUCT USED FOR UNKNOWN INDICATION
     Dosage: EVERY 4 WEEKS
     Route: 058
  12. CAPECITABINE. [Concomitant]
     Active Substance: CAPECITABINE
     Dosage: 3 DF, QD (DAY 1 TO 14) (3-0-0)
     Route: 065
     Dates: start: 20160102

REACTIONS (16)
  - Muscular weakness [Unknown]
  - Urinary tract infection [Unknown]
  - Nausea [Unknown]
  - Myelopathy [Unknown]
  - Stenosis [Unknown]
  - Movement disorder [Unknown]
  - Sensory disturbance [Unknown]
  - Asthenia [Unknown]
  - Bone pain [Unknown]
  - Metastasis [Unknown]
  - Erythema [Unknown]
  - Malignant neoplasm progression [Not Recovered/Not Resolved]
  - Paraplegia [Not Recovered/Not Resolved]
  - Pain in extremity [Unknown]
  - Night sweats [Unknown]
  - Fatigue [Unknown]

NARRATIVE: CASE EVENT DATE: 20151222
